FAERS Safety Report 6805125-9 (Version None)
Quarter: 2010Q2

REPORT INFORMATION
  Report Type: 
  Country: None (occurrence: None)
  Receive Date: 20100628
  Receipt Date: 20070901
  Transmission Date: 20101027
  Serious: No
  Sender: FDA-Public Use
  Company Number: US-PFIZER INC-2007050762

PATIENT
  Sex: Female
  Weight: 82.55 kg

DRUGS (2)
  1. GEODON [Suspect]
     Indication: BIPOLAR DISORDER
     Route: 048
     Dates: start: 20051101
  2. DIFLUCAN [Suspect]

REACTIONS (1)
  - ALOPECIA [None]
